FAERS Safety Report 4980267-1 (Version None)
Quarter: 2006Q2

REPORT INFORMATION
  Report Type: 
  Country: None (occurrence: None)
  Receive Date: 20060418
  Receipt Date: 20060403
  Transmission Date: 20061013
  Serious: Yes (Hospitalization, Disabling)
  Sender: FDA-Public Use
  Company Number: 2006-BP-03845RO

PATIENT
  Age: 54 Year
  Sex: Female

DRUGS (1)
  1. DEXAMETHASONE [Suspect]
     Dosage: 100 MG DAILY, IV
     Route: 042

REACTIONS (10)
  - COGNITIVE DISORDER [None]
  - CONFABULATION [None]
  - DISTURBANCE IN ATTENTION [None]
  - INCORRECT DOSE ADMINISTERED [None]
  - LEARNING DISORDER [None]
  - MANIA [None]
  - MEDICATION ERROR [None]
  - MEMORY IMPAIRMENT [None]
  - REFUSAL OF TREATMENT BY PATIENT [None]
  - SELF-MEDICATION [None]
